FAERS Safety Report 17327362 (Version 2)
Quarter: 2020Q3

REPORT INFORMATION
  Report Type: Report from Study
  Country: JP (occurrence: JP)
  Receive Date: 20200127
  Receipt Date: 20200903
  Transmission Date: 20201102
  Serious: Yes (Other)
  Sender: FDA-Public Use
  Company Number: JP-INCYTE CORPORATION-2017IN001735

PATIENT

DRUGS (10)
  1. MABLIN [Concomitant]
     Active Substance: BUSULFAN
     Indication: POLYCYTHAEMIA VERA
     Dosage: 1.5 MG
     Route: 048
     Dates: start: 20000519, end: 20001128
  2. MABLIN [Concomitant]
     Active Substance: BUSULFAN
     Dosage: 0.6 MG
     Route: 048
     Dates: start: 20170712, end: 20170815
  3. JAKAVI [Suspect]
     Active Substance: RUXOLITINIB
     Dosage: 10 MG BID
     Route: 048
     Dates: start: 20170712
  4. MABLIN [Concomitant]
     Active Substance: BUSULFAN
     Dosage: 0.8 MG
     Route: 065
     Dates: start: 20170816
  5. MABLIN [Concomitant]
     Active Substance: BUSULFAN
     Dosage: 0.3 MG
     Route: 048
     Dates: start: 20170517, end: 20170711
  6. JAKAVI [Suspect]
     Active Substance: RUXOLITINIB
     Dosage: 15 MG BID
     Route: 048
     Dates: start: 20170531, end: 20170711
  7. JAKAVI [Suspect]
     Active Substance: RUXOLITINIB
     Dosage: 15 MG BID
     Route: 048
     Dates: start: 20170322, end: 20170502
  8. JAKAVI [Suspect]
     Active Substance: RUXOLITINIB
     Dosage: 20 MG BID
     Route: 048
     Dates: start: 20170503, end: 20170530
  9. BAYASPIRIN [Concomitant]
     Active Substance: ASPIRIN
     Indication: POLYCYTHAEMIA VERA
     Dosage: 100 MG
     Route: 048
  10. JAKAVI [Suspect]
     Active Substance: RUXOLITINIB
     Indication: POLYCYTHAEMIA VERA
     Dosage: 10 MG, BID
     Route: 048
     Dates: start: 20170222, end: 20170321

REACTIONS (5)
  - Lymphocyte count decreased [Unknown]
  - Headache [Recovered/Resolved]
  - Drug ineffective [Unknown]
  - Haematocrit decreased [Recovered/Resolved]
  - Polycythaemia vera [Not Recovered/Not Resolved]

NARRATIVE: CASE EVENT DATE: 20170228
